FAERS Safety Report 25466185 (Version 1)
Quarter: 2025Q2

REPORT INFORMATION
  Report Type: Spontaneous
  Country: JP (occurrence: JP)
  Receive Date: 20250623
  Receipt Date: 20250623
  Transmission Date: 20250717
  Serious: Yes (Other)
  Sender: INDOCO REMEDIES LIMITED
  Company Number: JP-INDOCO-IND-2025-JP-LIT-00620

PATIENT
  Age: 26 Year
  Sex: Female

DRUGS (1)
  1. LACOSAMIDE [Suspect]
     Active Substance: LACOSAMIDE
     Indication: Product used for unknown indication
     Route: 065

REACTIONS (2)
  - Electrocardiogram QRS complex prolonged [Unknown]
  - Overdose [Unknown]
